FAERS Safety Report 22344277 (Version 2)
Quarter: 2023Q2

REPORT INFORMATION
  Report Type: Spontaneous
  Country: AT (occurrence: AT)
  Receive Date: 20230519
  Receipt Date: 20230607
  Transmission Date: 20230721
  Serious: Yes (Other)
  Sender: FDA-Public Use
  Company Number: AT-SA-SAC20230518000235

PATIENT
  Age: 80 Year
  Sex: Male

DRUGS (1)
  1. LIBTAYO [Suspect]
     Active Substance: CEMIPLIMAB-RWLC
     Indication: Squamous cell carcinoma of skin
     Dosage: UNK
     Route: 065
     Dates: start: 20220310

REACTIONS (2)
  - Metastases to lymph nodes [Recovered/Resolved]
  - Skin squamous cell carcinoma metastatic [Recovered/Resolved]
